FAERS Safety Report 7811086-6 (Version None)
Quarter: 2011Q4

REPORT INFORMATION
  Report Type: 
  Country: None (occurrence: None)
  Receive Date: 20111013
  Receipt Date: 20111004
  Transmission Date: 20120403
  Serious: Yes (Other)
  Sender: FDA-Public Use
  Company Number: US-UCBSA-042769

PATIENT

DRUGS (1)
  1. CIMZIA [Suspect]
     Indication: RHEUMATOID ARTHRITIS
     Dosage: DOSAGE FORMULATION: PFS
     Route: 058
     Dates: start: 20100801

REACTIONS (2)
  - STAPHYLOCOCCAL INFECTION [None]
  - HERPES ZOSTER [None]
